FAERS Safety Report 18359651 (Version 1)
Quarter: 2020Q4

REPORT INFORMATION
  Report Type: Spontaneous
  Country: JP (occurrence: JP)
  Receive Date: 20201008
  Receipt Date: 20201008
  Transmission Date: 20210114
  Serious: Yes (Disabling)
  Sender: FDA-Public Use
  Company Number: NVSJ2020JP008003

PATIENT
  Age: 88 Year
  Sex: Male

DRUGS (2)
  1. BEOVU [Suspect]
     Active Substance: BROLUCIZUMAB-DBLL
     Indication: AGE-RELATED MACULAR DEGENERATION
     Dosage: 1 UNK
     Route: 031
     Dates: start: 20200728
  2. EYLEA [Suspect]
     Active Substance: AFLIBERCEPT
     Indication: AGE-RELATED MACULAR DEGENERATION
     Dosage: UNK
     Route: 031

REACTIONS (3)
  - Vitreous opacities [Recovering/Resolving]
  - Iritis [Recovered/Resolved with Sequelae]
  - Vision blurred [Recovering/Resolving]

NARRATIVE: CASE EVENT DATE: 20200805
